FAERS Safety Report 18747694 (Version 2)
Quarter: 2021Q2

REPORT INFORMATION
  Report Type: Report from Study
  Country: US (occurrence: US)
  Receive Date: 20210115
  Receipt Date: 20210623
  Transmission Date: 20210717
  Serious: No
  Sender: FDA-Public Use
  Company Number: US-TAKEDA-2020TUS057060

PATIENT
  Sex: Female
  Weight: 69 kg

DRUGS (2)
  1. ESCITALOPRAM OXALATE. [Concomitant]
     Active Substance: ESCITALOPRAM OXALATE
  2. HUMAN NORMAL IMMUNOGLOBULIN; LIQUID [Suspect]
     Active Substance: HUMAN IMMUNOGLOBULIN G
     Indication: CHRONIC INFLAMMATORY DEMYELINATING POLYRADICULONEUROPATHY
     Dosage: 35 GRAM, Q3WEEKS
     Route: 042
     Dates: start: 20201020

REACTIONS (7)
  - Balance disorder [Unknown]
  - Product dose omission issue [Unknown]
  - Fatigue [Unknown]
  - Paraesthesia [Unknown]
  - Back pain [Unknown]
  - Malaise [Unknown]
  - Asthenia [Unknown]
